FAERS Safety Report 10842136 (Version 1)
Quarter: 2015Q1

REPORT INFORMATION
  Report Type: Report from Study
  Country: US (occurrence: US)
  Receive Date: 20150220
  Receipt Date: 20150220
  Transmission Date: 20150721
  Serious: No
  Sender: FDA-Public Use
  Company Number: US-ABBVIE-14P-163-1269903-00

PATIENT
  Sex: Male

DRUGS (3)
  1. HUMIRA [Suspect]
     Active Substance: ADALIMUMAB
     Dosage: THEN 1 PEN EVERY OTHER WEEK THEREAFTER
  2. HUMIRA [Suspect]
     Active Substance: ADALIMUMAB
     Indication: CROHN^S DISEASE
     Dosage: INJECT 4 PENS ON WEEK ONE
     Route: 058
     Dates: start: 20140729
  3. HUMIRA [Suspect]
     Active Substance: ADALIMUMAB
     Dosage: THEN INJECT 2 PENS ON WEEK 2

REACTIONS (2)
  - Haemoglobin decreased [Unknown]
  - Injection site pain [Unknown]
